FAERS Safety Report 9399795 (Version 1)
Quarter: 2013Q3

REPORT INFORMATION
  Report Type: Report from Study
  Country: US (occurrence: US)
  Receive Date: 20130715
  Receipt Date: 20130715
  Transmission Date: 20140515
  Serious: Yes (Other)
  Sender: FDA-Public Use
  Company Number: PHEH2013US011419

PATIENT
  Age: 67 Year
  Sex: Female
  Weight: 47.4 kg

DRUGS (16)
  1. ZOMETA [Suspect]
     Indication: PLASMA CELL MYELOMA
     Dosage: 4 MG, EVERY 28 DAYS
     Route: 042
     Dates: start: 20121116, end: 20130329
  2. VITAMIN B 12 [Concomitant]
     Dosage: UNK UKN, UNK
  3. TYLENOL WITH CODEINE [Concomitant]
     Dosage: UNK UKN, UNK
  4. REVLIMID [Concomitant]
     Indication: PLASMA CELL MYELOMA
     Dosage: 10 MG, 2 DAYS ON AND 7 DAYS OFF
     Route: 048
  5. PROCHLORPERAZINE [Concomitant]
     Dosage: UNK UKN, UNK
  6. OMEPRAZOLE [Concomitant]
     Dosage: UNK UKN, UNK
  7. MIRALAX [Concomitant]
     Dosage: UNK UKN, UNK
  8. ASA [Concomitant]
     Dosage: UNK UKN, UNK
  9. CALCITROL [Concomitant]
     Dosage: UNK UKN, UNK
  10. COLACE [Concomitant]
     Dosage: UNK UKN, UNK
  11. DEXAMETHASONE [Concomitant]
     Dosage: UNK UKN, UNK
  12. FENTANYL [Concomitant]
     Dosage: UNK UKN, UNK
  13. GRANISETRON [Concomitant]
     Dosage: UNK UKN, UNK
  14. LEVOTHYROXINE [Concomitant]
     Dosage: UNK UKN, UNK
  15. SYNTHROID [Concomitant]
     Indication: HYPOTHYROIDISM
     Dosage: 100 MG, DAILY
     Route: 048
  16. DECADRON [Concomitant]
     Indication: PROPHYLAXIS
     Dosage: 4 MG, EVERY 2 DAYS
     Route: 048

REACTIONS (7)
  - Renal impairment [Recovered/Resolved]
  - Blood creatinine increased [Recovered/Resolved]
  - Oedema peripheral [Recovered/Resolved]
  - Petechiae [Unknown]
  - Platelet count decreased [Not Recovered/Not Resolved]
  - Fatigue [Unknown]
  - Weight increased [Unknown]
